FAERS Safety Report 11456931 (Version 2)
Quarter: 2019Q4

REPORT INFORMATION
  Report Type: Spontaneous
  Country: CA (occurrence: CA)
  Receive Date: 20150904
  Receipt Date: 20191213
  Transmission Date: 20200122
  Serious: Yes (Other)
  Sender: FDA-Public Use
  Company Number: CA-AUROBINDO-AUR-APL-2015-07665

PATIENT
  Age: 37 Year
  Sex: Female

DRUGS (2)
  1. CITALOPRAM [Suspect]
     Active Substance: CITALOPRAM HYDROBROMIDE
     Indication: DEPRESSION
     Dosage: 20 MILLIGRAM, ONCE A DAY
     Route: 065
  2. CITALOPRAM [Suspect]
     Active Substance: CITALOPRAM HYDROBROMIDE
     Dosage: 30 MILLIGRAM, ONCE A DAY
     Route: 065

REACTIONS (4)
  - Drug ineffective [Recovered/Resolved]
  - Compulsive handwashing [Recovered/Resolved]
  - Hypomania [Recovered/Resolved]
  - Obsessive-compulsive disorder [Recovered/Resolved]
